FAERS Safety Report 18316720 (Version 2)
Quarter: 2020Q4

REPORT INFORMATION
  Report Type: Report from Study
  Country: US (occurrence: US)
  Receive Date: 20200928
  Receipt Date: 20201120
  Transmission Date: 20210113
  Serious: No
  Sender: FDA-Public Use
  Company Number: US-SA-2020SA255034

PATIENT

DRUGS (2)
  1. TERIFLUNOMIDE. [Suspect]
     Active Substance: TERIFLUNOMIDE
     Indication: MULTIPLE SCLEROSIS
     Dosage: 14 MG, QD
     Route: 048
     Dates: start: 2017
  2. TERIFLUNOMIDE. [Suspect]
     Active Substance: TERIFLUNOMIDE
     Dosage: 14 MG, QD
     Route: 048
     Dates: start: 20180627

REACTIONS (14)
  - Head discomfort [Not Recovered/Not Resolved]
  - Nasopharyngitis [Not Recovered/Not Resolved]
  - Oral herpes [Recovered/Resolved]
  - COVID-19 [Not Recovered/Not Resolved]
  - Dyspnoea [Recovered/Resolved]
  - Ageusia [Not Recovered/Not Resolved]
  - Anosmia [Not Recovered/Not Resolved]
  - Fatigue [Recovered/Resolved]
  - Weight decreased [Not Recovered/Not Resolved]
  - Respiratory tract congestion [Not Recovered/Not Resolved]
  - Hypoaesthesia [Unknown]
  - Oropharyngeal pain [Recovered/Resolved]
  - Cough [Not Recovered/Not Resolved]
  - Stenosis [Unknown]

NARRATIVE: CASE EVENT DATE: 202008
